FAERS Safety Report 4421198-5 (Version None)
Quarter: 2004Q3

REPORT INFORMATION
  Report Type: 
  Country: None (occurrence: None)
  Receive Date: 20040804
  Receipt Date: 20040722
  Transmission Date: 20050211
  Serious: Yes (Death, Hospitalization, Other)
  Sender: FDA-Public Use
  Company Number: 2004044715

PATIENT
  Age: 67 Year
  Sex: Male
  Weight: 57.6 kg

DRUGS (5)
  1. DIFLUCAN [Suspect]
     Indication: CANDIDA SEROLOGY POSITIVE
     Dosage: 200 MG (100 MG, 2 IN 1 D), INTRAVENOUS
     Route: 042
     Dates: start: 20040623, end: 20040628
  2. DIFLUCAN [Suspect]
     Indication: FUNGAEMIA
     Dosage: 200 MG (100 MG, 2 IN 1 D), INTRAVENOUS
     Route: 042
     Dates: start: 20040623, end: 20040628
  3. MEROPENEM (MEROPENEM) [Concomitant]
  4. CEFTAZIDIME SODIUM [Concomitant]
  5. AMIKACIN SULFATE [Concomitant]

REACTIONS (6)
  - ELECTROCARDIOGRAM ABNORMAL [None]
  - ELECTROCARDIOGRAM QT PROLONGED [None]
  - ELECTROLYTE IMBALANCE [None]
  - HAEMODIALYSIS [None]
  - VENTRICULAR FIBRILLATION [None]
  - VENTRICULAR TACHYCARDIA [None]
